FAERS Safety Report 12734958 (Version 2)
Quarter: 2016Q3

REPORT INFORMATION
  Report Type: Spontaneous
  Country: TR (occurrence: TR)
  Receive Date: 20160913
  Receipt Date: 20160921
  Transmission Date: 20161109
  Serious: Yes (Death, Other)
  Sender: FDA-Public Use
  Company Number: TR-BEH-2016073277

PATIENT
  Age: 15 Year
  Sex: Female

DRUGS (4)
  1. HUMAN IMMUNOGLOBULIN IV (INN) [Suspect]
     Active Substance: HUMAN IMMUNOGLOBULIN G
     Indication: RASH
     Dosage: 400 MG/KG, QD
     Route: 042
  2. HUMAN IMMUNOGLOBULIN IV (INN) [Suspect]
     Active Substance: HUMAN IMMUNOGLOBULIN G
     Indication: TOXIC EPIDERMAL NECROLYSIS
  3. ANTIHISTAMINES FOR SYSTEMIC USE [Suspect]
     Active Substance: ANTIHISTAMINES NOS
     Indication: RASH
     Route: 042
  4. ANTIHISTAMINES FOR SYSTEMIC USE [Suspect]
     Active Substance: ANTIHISTAMINES NOS
     Indication: TOXIC EPIDERMAL NECROLYSIS

REACTIONS (1)
  - Drug ineffective for unapproved indication [Fatal]
